FAERS Safety Report 7439447-8 (Version None)
Quarter: 2011Q2

REPORT INFORMATION
  Report Type: 
  Country: None (occurrence: None)
  Receive Date: 20110427
  Receipt Date: 20110407
  Transmission Date: 20111010
  Serious: Yes (Other)
  Sender: FDA-Public Use
  Company Number: US-BAYER-2011-031095

PATIENT
  Age: 35 Year
  Sex: Female

DRUGS (1)
  1. MIRENA [Suspect]
     Dosage: 20 MCG/24HR, ONCE
     Route: 015
     Dates: start: 20071102

REACTIONS (2)
  - CERVICAL DYSPLASIA [None]
  - ECTOPIC PREGNANCY WITH INTRAUTERINE DEVICE [None]
